FAERS Safety Report 18255269 (Version 1)
Quarter: 2020Q3

REPORT INFORMATION
  Report Type: Spontaneous
  Country: US (occurrence: US)
  Receive Date: 20200910
  Receipt Date: 20200910
  Transmission Date: 20201103
  Serious: Yes (Other)
  Sender: FDA-Public Use
  Company Number: US-PURDUE-USA-2020-0165686

PATIENT
  Sex: Male

DRUGS (3)
  1. OXYCODONE HCL CR TABLETS (SIMILAR TO NDA 22?272) [Suspect]
     Active Substance: OXYCODONE HYDROCHLORIDE
     Indication: PRODUCT USED FOR UNKNOWN INDICATION
     Route: 048
  2. OXYCODONE HCL TABLETS (RHODES 91?490) [Suspect]
     Active Substance: OXYCODONE HYDROCHLORIDE
     Indication: PRODUCT USED FOR UNKNOWN INDICATION
     Route: 048
  3. OXYCONTIN [Suspect]
     Active Substance: OXYCODONE HYDROCHLORIDE
     Indication: PAIN
     Dosage: UNK
     Route: 048
     Dates: start: 201309

REACTIONS (21)
  - Withdrawal syndrome [Unknown]
  - Lacrimation increased [Unknown]
  - Intervertebral disc disorder [Unknown]
  - Suicidal ideation [Unknown]
  - Mood altered [Unknown]
  - Vertigo [Unknown]
  - Nausea [Unknown]
  - Emotional distress [Unknown]
  - Constipation [Unknown]
  - Asthenia [Unknown]
  - Dry mouth [Unknown]
  - Drug dependence [Unknown]
  - Dystonia [Unknown]
  - Muscle spasticity [Unknown]
  - Arthralgia [Unknown]
  - Hyperhidrosis [Unknown]
  - Fatigue [Unknown]
  - Pain [Unknown]
  - Migraine [Unknown]
  - Insomnia [Unknown]
  - Dysuria [Unknown]
